FAERS Safety Report 12682768 (Version 1)
Quarter: 2016Q3

REPORT INFORMATION
  Report Type: Spontaneous
  Country: US (occurrence: US)
  Receive Date: 20160825
  Receipt Date: 20160825
  Transmission Date: 20161109
  Serious: Yes (Death, Other)
  Sender: FDA-Public Use
  Company Number: US-BRISTOL-MYERS SQUIBB COMPANY-BMS-2016-068477

PATIENT
  Sex: Male

DRUGS (3)
  1. OPDIVO [Suspect]
     Active Substance: NIVOLUMAB
     Dosage: 274 MG, Q2WK
     Route: 065
     Dates: start: 20160602
  2. OPDIVO [Suspect]
     Active Substance: NIVOLUMAB
     Indication: BLADDER CANCER
     Dosage: 274 MG, Q2WK
     Route: 065
     Dates: start: 20160505
  3. OPDIVO [Suspect]
     Active Substance: NIVOLUMAB
     Dosage: 274 MG, Q2WK
     Route: 065
     Dates: start: 20160519

REACTIONS (2)
  - Malignant neoplasm progression [Fatal]
  - Product use issue [Unknown]
